FAERS Safety Report 5796718-9 (Version None)
Quarter: 2008Q3

REPORT INFORMATION
  Report Type: 
  Country: None (occurrence: None)
  Receive Date: 20080701
  Receipt Date: 20080625
  Transmission Date: 20090109
  Serious: Yes (Disabling)
  Sender: FDA-Public Use
  Company Number: US-MERCK-0806USA08801

PATIENT
  Sex: Female

DRUGS (3)
  1. ZOCOR [Suspect]
     Route: 048
     Dates: start: 20040601, end: 20080601
  2. PRAVASTATIN SODIUM [Suspect]
     Route: 065
  3. STATIN (UNSPECIFIED) [Concomitant]
     Route: 065

REACTIONS (6)
  - ADVERSE EVENT [None]
  - ASTHENIA [None]
  - BEDRIDDEN [None]
  - EYELID DISORDER [None]
  - FALL [None]
  - MYALGIA [None]
